FAERS Safety Report 4885001-1 (Version None)
Quarter: 2006Q1

REPORT INFORMATION
  Report Type: 
  Country: None (occurrence: None)
  Receive Date: 20060119
  Receipt Date: 20020730
  Transmission Date: 20060701
  Serious: Yes (Death, Hospitalization, Other)
  Sender: FDA-Public Use
  Company Number: US-MERCK-0208USA00740

PATIENT
  Age: 66 Year
  Sex: Female
  Weight: 82 kg

DRUGS (4)
  1. VIOXX [Suspect]
     Indication: PLANTAR FASCIITIS
     Route: 048
     Dates: start: 19991101, end: 20000301
  2. TAMOXIFEN CITRATE [Concomitant]
     Route: 065
  3. VICOPROFEN [Concomitant]
     Route: 065
  4. ZOLOFT [Concomitant]
     Route: 065

REACTIONS (4)
  - ADVERSE EVENT [None]
  - DEATH [None]
  - OEDEMA PERIPHERAL [None]
  - THROMBOSIS [None]
